FAERS Safety Report 5407614-0 (Version None)
Quarter: 2007Q3

REPORT INFORMATION
  Report Type: 
  Country: None (occurrence: None)
  Receive Date: 20070807
  Receipt Date: 20070730
  Transmission Date: 20080115
  Serious: Yes (Death)
  Sender: FDA-Public Use
  Company Number: US-GENENTECH-245362

PATIENT
  Sex: Female
  Weight: 63.039 kg

DRUGS (10)
  1. BEVACIZUMAB [Suspect]
     Indication: NON-SMALL CELL LUNG CANCER
     Dosage: 10 MG/KG, UNK
     Route: 042
     Dates: start: 20041105
  2. CELEBREX [Concomitant]
     Indication: OSTEOARTHRITIS
     Dosage: 200 MG, BID
  3. ZYRTEC [Concomitant]
     Indication: HYPERSENSITIVITY
     Dosage: 10 MG, PRN
  4. EVISTA [Concomitant]
     Indication: HORMONE REPLACEMENT THERAPY
     Dosage: 6 MG, QD
  5. ATIVAN [Concomitant]
     Indication: ANXIETY
     Dosage: 1 MG, PRN
  6. PAXIL [Concomitant]
     Indication: DEPRESSION
     Dosage: 25 MG, QD
  7. AVALIDE [Concomitant]
     Indication: HYPERTENSION
     Dosage: UNK, QD
  8. DARVOCET [Concomitant]
     Indication: PAIN
     Dosage: UNK, PRN
  9. MICRO-K [Concomitant]
     Indication: DRUG USE FOR UNKNOWN INDICATION
     Dosage: 10 MEQ, UNK
     Dates: start: 20041019
  10. NEXIUM [Concomitant]
     Indication: GASTROOESOPHAGEAL REFLUX DISEASE
     Dosage: 40 MG, QD
     Dates: start: 20041019

REACTIONS (1)
  - PNEUMONITIS [None]
